FAERS Safety Report 8614960-6 (Version None)
Quarter: 2012Q3

REPORT INFORMATION
  Report Type: 
  Country: None (occurrence: None)
  Receive Date: 20120814
  Receipt Date: 20120814
  Transmission Date: 20120928
  Serious: No
  Sender: FDA-Public Use
  Company Number: None

PATIENT
  Age: 72 Year
  Sex: Female
  Weight: 69.8539 kg

DRUGS (1)
  1. GABAPENTIN [Suspect]
     Indication: SLEEP DISORDER
     Dosage: 3 PILLS, NIGHT, DAILY
     Dates: start: 20080101, end: 20120101

REACTIONS (1)
  - DRUG INEFFECTIVE [None]
